FAERS Safety Report 20703996 (Version 3)
Quarter: 2022Q2

REPORT INFORMATION
  Report Type: Other
  Country: US (occurrence: None)
  Receive Date: 20220413
  Receipt Date: 20220513
  Transmission Date: 20220720
  Serious: Yes (Hospitalization, Other)
  Sender: FDA-Public Use
  Company Number: US-ROCHE-2882076

PATIENT
  Sex: Female
  Weight: 45.400 kg

DRUGS (25)
  1. OCREVUS [Suspect]
     Active Substance: OCRELIZUMAB
     Indication: Multiple sclerosis
     Dosage: ONGOING: NO, 600 MG EVERY 6 MONTH
     Route: 042
  2. OCREVUS [Suspect]
     Active Substance: OCRELIZUMAB
     Dosage: RESTART
     Route: 042
  3. CLONAZEPAM [Suspect]
     Active Substance: CLONAZEPAM
     Indication: Anxiety
     Route: 065
  4. COPAXONE [Concomitant]
     Active Substance: GLATIRAMER ACETATE
  5. KESIMPTA [Concomitant]
     Active Substance: OFATUMUMAB
  6. ANORO ELLIPTA [Concomitant]
     Active Substance: UMECLIDINIUM BROMIDE\VILANTEROL TRIFENATATE
  7. ASPIRIN [Concomitant]
     Active Substance: ASPIRIN
  8. ATORVASTATIN [Concomitant]
     Active Substance: ATORVASTATIN
  9. BISACODYL [Concomitant]
     Active Substance: BISACODYL
     Route: 048
  10. VITAMIN D3 [Concomitant]
     Active Substance: CHOLECALCIFEROL
  11. CITALOPRAM [Concomitant]
     Active Substance: CITALOPRAM HYDROBROMIDE
  12. CLONAZEPAM [Concomitant]
     Active Substance: CLONAZEPAM
     Route: 048
  13. DENOSUMAB [Concomitant]
     Active Substance: DENOSUMAB
  14. DOCUSATE [Concomitant]
     Active Substance: DOCUSATE
     Route: 048
  15. FUROSEMIDE [Concomitant]
     Active Substance: FUROSEMIDE
  16. GABAPENTIN [Concomitant]
     Active Substance: GABAPENTIN
  17. HYDROMORPHONE [Concomitant]
     Active Substance: HYDROMORPHONE
  18. LIDOCAINE [Concomitant]
     Active Substance: LIDOCAINE
  19. MORPHINE [Concomitant]
     Active Substance: MORPHINE
  20. LISINOPRIL [Concomitant]
     Active Substance: LISINOPRIL
  21. NARCAN [Concomitant]
     Active Substance: NALOXONE HYDROCHLORIDE
  22. PROAIR HFA [Concomitant]
     Active Substance: ALBUTEROL SULFATE
  23. SOLIFENACIN [Concomitant]
     Active Substance: SOLIFENACIN
  24. STIOLTO RESPIMAT [Concomitant]
     Active Substance: OLODATEROL HYDROCHLORIDE\TIOTROPIUM BROMIDE MONOHYDRATE
  25. ZOLPIDEM [Concomitant]
     Active Substance: ZOLPIDEM TARTRATE

REACTIONS (7)
  - Hydrocephalus [Not Recovered/Not Resolved]
  - Myelopathy [Unknown]
  - Urinary tract infection [Unknown]
  - Urinary incontinence [Not Recovered/Not Resolved]
  - Pain [Not Recovered/Not Resolved]
  - Gait disturbance [Not Recovered/Not Resolved]
  - Off label use [Unknown]
